FAERS Safety Report 15976015 (Version 1)
Quarter: 2019Q1

REPORT INFORMATION
  Report Type: Spontaneous
  Country: US (occurrence: US)
  Receive Date: 20190218
  Receipt Date: 20190218
  Transmission Date: 20190418
  Serious: Yes (Other)
  Sender: FDA-Public Use
  Company Number: US-MYLANLABS-2019M1013042

PATIENT
  Age: 6 Decade
  Sex: Male

DRUGS (7)
  1. GABAPENTIN. [Suspect]
     Active Substance: GABAPENTIN
     Indication: ANXIETY
     Dosage: ADMINISTERED 3 TIMES DAILY
     Route: 065
  2. GABAPENTIN. [Suspect]
     Active Substance: GABAPENTIN
     Dosage: CRUSHING AND INSUFFLATING 600MG GABAPENTIN TABLETS (3-4 TABLETS) NASALLY AT 2 HOUR INTERVAL DURIN...
     Route: 050
  3. TRAZODONE [Concomitant]
     Active Substance: TRAZODONE HYDROCHLORIDE
     Indication: PRODUCT USED FOR UNKNOWN INDICATION
     Dosage: AT NIGHT
     Route: 065
  4. DIVALPROEX [Concomitant]
     Active Substance: DIVALPROEX SODIUM
     Indication: PRODUCT USED FOR UNKNOWN INDICATION
     Dosage: AT NIGHT
     Route: 065
  5. GABAPENTIN. [Suspect]
     Active Substance: GABAPENTIN
     Indication: PAIN
     Dosage: ADMINISTERED 3 TIMES DAILY
     Route: 065
  6. SERTRALINE [Concomitant]
     Active Substance: SERTRALINE HYDROCHLORIDE
     Indication: PRODUCT USED FOR UNKNOWN INDICATION
     Route: 065
  7. GABAPENTIN. [Suspect]
     Active Substance: GABAPENTIN
     Dosage: 10 CAPSULES
     Route: 065

REACTIONS (11)
  - Dysphoria [Unknown]
  - Off label use [Unknown]
  - Substance use disorder [Unknown]
  - Drug withdrawal syndrome [Unknown]
  - Nausea [Unknown]
  - Drug abuse [Unknown]
  - Irritability [Unknown]
  - Diarrhoea [Unknown]
  - Suicidal ideation [Recovered/Resolved]
  - Intentional product use issue [Unknown]
  - Intentional overdose [Recovered/Resolved]
